FAERS Safety Report 7927735-8 (Version None)
Quarter: 2011Q4

REPORT INFORMATION
  Report Type: 
  Country: None (occurrence: None)
  Receive Date: 20111118
  Receipt Date: 20101004
  Transmission Date: 20120403
  Serious: No
  Sender: FDA-Public Use
  Company Number: US-BRISTOL-MYERS SQUIBB COMPANY-15266067

PATIENT
  Age: 54 Year
  Sex: Female

DRUGS (5)
  1. HYDROCHLOROTHIAZIDE [Concomitant]
  2. XENICAL [Concomitant]
  3. LISINOPRIL [Concomitant]
  4. GLUCOPHAGE XR [Suspect]
     Dosage: DOSE TAKEN OVER 5 YEARS AGO.GLUCOPHAGE 500XR ALSO TAKEN AS CONMED.
  5. SYNTHROID [Concomitant]

REACTIONS (3)
  - WEIGHT DECREASED [None]
  - MEDICATION RESIDUE [None]
  - DRUG INEFFECTIVE [None]
